FAERS Safety Report 9220221 (Version 1)
Quarter: 2013Q2

REPORT INFORMATION
  Report Type: Spontaneous
  Country: None (occurrence: None)
  Receive Date: 20130405
  Receipt Date: 20130405
  Transmission Date: 20140414
  Serious: Yes (Other)
  Sender: FDA-Public Use
  Company Number: AUR-APL-2009-01630

PATIENT
  Age: 27 Year
  Sex: Male

DRUGS (12)
  1. SERTRALINE (SERTRALINE) (SERTRALINE) [Suspect]
     Indication: SCHIZOPHRENIA, PARANOID TYPE
  2. SERTRALINE (SERTRALINE) (SERTRALINE) [Suspect]
     Indication: OBSESSIVE-COMPULSIVE DISORDER
  3. RISPERIDONE (RISPERIDONE) [Suspect]
     Indication: SCHIZOPHRENIA, PARANOID TYPE
     Dosage: 6 MG (6 MG, 1 IN 1 D), UNKNOWN
  4. RISPERIDONE (RISPERIDONE) [Suspect]
     Indication: OBSESSIVE-COMPULSIVE DISORDER
     Dosage: 6 MG (6 MG, 1 IN 1 D), UNKNOWN
  5. FLUOXETINE (FLUOXETINE) [Suspect]
     Indication: SCHIZOPHRENIA, PARANOID TYPE
  6. FLUOXETINE (FLUOXETINE) [Suspect]
     Indication: OBSESSIVE-COMPULSIVE DISORDER
  7. OLANZAPINE (OLANZAPINE) [Suspect]
     Indication: SCHIZOPHRENIA, PARANOID TYPE
  8. OLANZAPINE (OLANZAPINE) [Suspect]
     Indication: OBSESSIVE-COMPULSIVE DISORDER
  9. ARIPIPRAZOLE (ARIPIPRAZOLE) [Suspect]
     Indication: SCHIZOPHRENIA, PARANOID TYPE
  10. ARIPIPRAZOLE (ARIPIPRAZOLE) [Suspect]
     Indication: OBSESSIVE-COMPULSIVE DISORDER
  11. PROCYCLIDINE (PROCYCLIDINE) [Concomitant]
  12. PROPRANOLOL (PROPRANOLOL) [Concomitant]

REACTIONS (4)
  - Grand mal convulsion [None]
  - Psychotic disorder [None]
  - Electroencephalogram abnormal [None]
  - Drug ineffective [None]
